FAERS Safety Report 5083555-6 (Version None)
Quarter: 2006Q3

REPORT INFORMATION
  Report Type: 
  Country: None (occurrence: None)
  Receive Date: 20060720
  Receipt Date: 20060426
  Transmission Date: 20061208
  Serious: Yes (Hospitalization)
  Sender: FDA-Public Use
  Company Number: 2006058774

PATIENT
  Age: 53 Year
  Sex: Male
  Weight: 117.9352 kg

DRUGS (1)
  1. CELEBREX [Suspect]
     Indication: MYALGIA
     Dosage: 200 MG (200 MG, 1 IN 1 D)

REACTIONS (1)
  - MYOCARDIAL INFARCTION [None]
